FAERS Safety Report 8874556 (Version 1)
Quarter: 2012Q4

REPORT INFORMATION
  Report Type: 
  Country: US (occurrence: US)
  Receive Date: 20121031
  Receipt Date: 20121031
  Transmission Date: 20130627
  Serious: No
  Sender: FDA-Public Use
  Company Number: US-VERTEX PHARMACEUTICAL INC.-2012-023776

PATIENT
  Age: 55 Year
  Sex: Male
  Weight: 101 kg

DRUGS (3)
  1. INCIVEK [Suspect]
     Indication: HEPATITIS C
     Dosage: 2 DF, tid
     Route: 048
     Dates: start: 20120909
  2. RIBAVIRIN [Suspect]
     Indication: HEPATITIS C
     Dosage: 1 DF, bid
     Route: 048
     Dates: start: 20120909
  3. PEGASYS [Suspect]
     Indication: HEPATITIS C
     Dosage: 180 ?g
     Route: 058
     Dates: start: 20120909

REACTIONS (2)
  - Incorrect dose administered [Recovered/Resolved]
  - Pruritus [Not Recovered/Not Resolved]
